FAERS Safety Report 11707020 (Version 3)
Quarter: 2019Q4

REPORT INFORMATION
  Report Type: Report from Study
  Country: US (occurrence: US)
  Receive Date: 20151106
  Receipt Date: 20191127
  Transmission Date: 20200122
  Serious: Yes (Congenital Anomaly, Other)
  Sender: FDA-Public Use
  Company Number: US-TEVA-607308USA

PATIENT
  Age: 0 Day
  Sex: Female
  Weight: 52.66 kg

DRUGS (1)
  1. NUVIGIL [Suspect]
     Active Substance: ARMODAFINIL
     Indication: NARCOLEPSY
     Dosage: 150 MILLIGRAM DAILY;
     Route: 064
     Dates: start: 2008

REACTIONS (3)
  - Foetal exposure during pregnancy [Unknown]
  - Breech presentation [Recovered/Resolved]
  - Congenital torticollis [Unknown]

NARRATIVE: CASE EVENT DATE: 20141024
